FAERS Safety Report 16876745 (Version 1)
Quarter: 2019Q4

REPORT INFORMATION
  Report Type: Spontaneous
  Country: US (occurrence: US)
  Receive Date: 20191002
  Receipt Date: 20191002
  Transmission Date: 20200122
  Serious: Yes (Disabling)
  Sender: FDA-Public Use
  Company Number: None

PATIENT
  Age: 40 Year
  Sex: Female
  Weight: 78.75 kg

DRUGS (2)
  1. CIPROFLOXACIN. [Suspect]
     Active Substance: CIPROFLOXACIN
     Indication: KIDNEY INFECTION
     Route: 048
     Dates: start: 20190927, end: 20190929
  2. MAGNESIUM [Concomitant]
     Active Substance: MAGNESIUM

REACTIONS (9)
  - Hypoaesthesia [None]
  - Tendon pain [None]
  - Paraesthesia [None]
  - Dizziness [None]
  - Balance disorder [None]
  - Feeling abnormal [None]
  - Pain [None]
  - Depression [None]
  - Headache [None]

NARRATIVE: CASE EVENT DATE: 20190927
